FAERS Safety Report 5166301-7 (Version None)
Quarter: 2006Q4

REPORT INFORMATION
  Report Type: 
  Country: None (occurrence: None)
  Receive Date: 20061129
  Receipt Date: 20061114
  Transmission Date: 20070319
  Serious: Yes (Hospitalization)
  Sender: FDA-Public Use
  Company Number: 2006PV025182

PATIENT
  Age: 69 Year
  Sex: Female

DRUGS (2)
  1. BYETTA [Suspect]
     Indication: DIABETES MELLITUS NON-INSULIN-DEPENDENT
     Dosage: SC
     Route: 058
     Dates: start: 20050601, end: 20050801
  2. ACTOS [Concomitant]

REACTIONS (7)
  - COLITIS [None]
  - DEHYDRATION [None]
  - GASTROOESOPHAGEAL REFLUX DISEASE [None]
  - NAUSEA [None]
  - ORTHOSTATIC HYPERTENSION [None]
  - PALPITATIONS [None]
  - VOMITING [None]
